FAERS Safety Report 18650346 (Version 1)
Quarter: 2020Q4

REPORT INFORMATION
  Report Type: Spontaneous
  Country: US (occurrence: US)
  Receive Date: 20201222
  Receipt Date: 20201222
  Transmission Date: 20210114
  Serious: Yes (Other)
  Sender: FDA-Public Use
  Company Number: US-JNJFOC-20201226367

PATIENT
  Sex: Female
  Weight: 61.23 kg

DRUGS (4)
  1. TOPIRAMATE. [Suspect]
     Active Substance: TOPIRAMATE
     Indication: SEIZURE
     Route: 048
  2. DILANTIN [Suspect]
     Active Substance: PHENYTOIN
     Indication: SEIZURE
     Dosage: 3 PILLS IN A DAY 1 IN THE MORNING AND 2 IN THE NIGHT
     Route: 048
  3. DILANTIN [Suspect]
     Active Substance: PHENYTOIN
     Dosage: DILANTIN INFATABS
     Route: 048
  4. ROSUVASTATIN. [Concomitant]
     Active Substance: ROSUVASTATIN
     Indication: BLOOD PRESSURE MEASUREMENT

REACTIONS (1)
  - Colon cancer [Unknown]
